FAERS Safety Report 15588295 (Version 1)
Quarter: 2018Q4

REPORT INFORMATION
  Report Type: Spontaneous
  Country: GB (occurrence: GB)
  Receive Date: 20181105
  Receipt Date: 20181105
  Transmission Date: 20190205
  Serious: Yes (Other)
  Sender: FDA-Public Use
  Company Number: GB-ELI_LILLY_AND_COMPANY-GB201810014456

PATIENT
  Age: 41 Year
  Sex: Female
  Weight: 63 kg

DRUGS (2)
  1. DULOXETINE HYDROCHLORIDE. [Suspect]
     Active Substance: DULOXETINE HYDROCHLORIDE
     Indication: ANXIETY
     Dosage: 30 MG, UNKNOWN
     Route: 048
  2. DULOXETINE HYDROCHLORIDE. [Suspect]
     Active Substance: DULOXETINE HYDROCHLORIDE
     Dosage: 60 MG, UNKNOWN
     Route: 048
     Dates: start: 20181002, end: 20181012

REACTIONS (3)
  - Blister [Not Recovered/Not Resolved]
  - Fatigue [Unknown]
  - Contusion [Unknown]

NARRATIVE: CASE EVENT DATE: 20181008
